FAERS Safety Report 5960180-3 (Version None)
Quarter: 2008Q4

REPORT INFORMATION
  Report Type: 
  Country: None (occurrence: None)
  Receive Date: 20081120
  Receipt Date: 20081112
  Transmission Date: 20090506
  Serious: Yes (Disabling)
  Sender: FDA-Public Use
  Company Number: JP-ELI_LILLY_AND_COMPANY-JP200811003164

PATIENT
  Age: 12 Year
  Sex: Female

DRUGS (1)
  1. HUMATROPE [Suspect]
     Indication: CHONDRODYSTROPHY
     Dosage: UNK, UNKNOWN
     Route: 058

REACTIONS (1)
  - KYPHOSIS [None]
